FAERS Safety Report 9372608 (Version 1)
Quarter: 2013Q2

REPORT INFORMATION
  Report Type: Report from Study
  Country: US (occurrence: US)
  Receive Date: 20130627
  Receipt Date: 20130627
  Transmission Date: 20140414
  Serious: Yes (Hospitalization)
  Sender: FDA-Public Use
  Company Number: US-MYLANLABS-2013S1002528

PATIENT
  Age: 56 Year
  Sex: Male
  Weight: 68.5 kg

DRUGS (13)
  1. CLOZAPINE TABLETS [Suspect]
     Indication: SCHIZOAFFECTIVE DISORDER
     Route: 048
     Dates: start: 20120815, end: 20130129
  2. ASPIRIN [Concomitant]
     Route: 048
  3. BENZTROPINE [Concomitant]
     Route: 048
  4. CARVEDILOL [Concomitant]
     Route: 048
  5. LISINOPRIL [Concomitant]
     Route: 048
  6. SIMVASTATIN [Concomitant]
     Route: 048
  7. VALPROIC ACID [Concomitant]
     Dosage: 2 CAPSULES BY MOUTH EVERY MORNING AND 4 CAPSULES BY MOUTH AT BEDTIME.
     Route: 048
  8. OMEPRAZOLE [Concomitant]
     Route: 048
  9. AMIODARONE [Concomitant]
  10. OLANZAPINE [Concomitant]
  11. ABILIFY [Concomitant]
  12. COGENTIN [Concomitant]
  13. DEPAKOTE [Concomitant]
     Dosage: 500MG/QAM AND 1000MG/HS

REACTIONS (2)
  - Supraventricular tachycardia [Recovered/Resolved]
  - Ventricular tachycardia [Recovered/Resolved]
